FAERS Safety Report 9416439 (Version 2)
Quarter: 2013Q3

REPORT INFORMATION
  Report Type: Spontaneous
  Country: AT (occurrence: AT)
  Receive Date: 20130724
  Receipt Date: 20130825
  Transmission Date: 20140515
  Serious: Yes (Other)
  Sender: FDA-Public Use
  Company Number: AT-JNJFOC-20130706417

PATIENT
  Sex: Female

DRUGS (2)
  1. NICORETTE TRANSDERMAL [Suspect]
     Route: 062
  2. NICORETTE TRANSDERMAL PATCH [Suspect]
     Indication: PRODUCT USED FOR UNKNOWN INDICATION
     Route: 062

REACTIONS (1)
  - Application site erythema [Unknown]
